FAERS Safety Report 5086878-X (Version None)
Quarter: 2006Q3

REPORT INFORMATION
  Report Type: 
  Country: None (occurrence: None)
  Receive Date: 20060823
  Receipt Date: 20060815
  Transmission Date: 20061208
  Serious: Yes (Disabling)
  Sender: FDA-Public Use
  Company Number: US-MERCK-0608USA03933

PATIENT
  Sex: Female

DRUGS (3)
  1. FOSAMAX [Suspect]
     Route: 048
     Dates: end: 20050101
  2. CALCIUM (UNSPECIFIED) [Concomitant]
     Route: 065
  3. VITAMIN D (UNSPECIFIED) [Concomitant]
     Route: 065

REACTIONS (1)
  - EYE PAIN [None]
